FAERS Safety Report 4368811-9 (Version None)
Quarter: 2004Q2

REPORT INFORMATION
  Report Type: 
  Country: None (occurrence: None)
  Receive Date: 20040528
  Receipt Date: 20040520
  Transmission Date: 20050107
  Serious: Yes (Disabling, Other)
  Sender: FDA-Public Use
  Company Number: 2004006074

PATIENT
  Sex: Female

DRUGS (1)
  1. NORVASC [Suspect]
     Indication: HYPERTENSION

REACTIONS (2)
  - BLOOD CHOLESTEROL ABNORMAL [None]
  - UNEVALUABLE EVENT [None]
